FAERS Safety Report 13195475 (Version 1)
Quarter: 2017Q1

REPORT INFORMATION
  Report Type: Spontaneous
  Country: US (occurrence: US)
  Receive Date: 20170208
  Receipt Date: 20170208
  Transmission Date: 20170428
  Serious: No
  Sender: FDA-Public Use
  Company Number: None

PATIENT

DRUGS (2)
  1. CIPROFLOXACIN 0.3% [Suspect]
     Active Substance: CIPROFLOXACIN
     Dosage: DOSAGE FORM - SOLUTION?SIDE - 5 ML
     Route: 047
  2. OFLOXACIN. [Suspect]
     Active Substance: OFLOXACIN
     Dosage: DOSAGE FORM - SOLUTION?SIZE - 5 ML
     Route: 047

REACTIONS (2)
  - Wrong drug administered [None]
  - Product packaging confusion [None]
